FAERS Safety Report 18726518 (Version 1)
Quarter: 2021Q1

REPORT INFORMATION
  Report Type: Spontaneous
  Country: US (occurrence: US)
  Receive Date: 20210111
  Receipt Date: 20210111
  Transmission Date: 20210419
  Serious: No
  Sender: FDA-Public Use
  Company Number: US-COLLEGIUM PHARMACEUTICAL, INC.-2020CGM00219

PATIENT
  Age: 78 Year
  Sex: Female
  Weight: 62.59 kg

DRUGS (7)
  1. LIQUID VITAMIN B COMPLEX [DIETARY SUPPLEMENT] [Suspect]
     Active Substance: DIETARY SUPPLEMENT
  2. SYNTHROID [Concomitant]
     Active Substance: LEVOTHYROXINE SODIUM
  3. REGULAR VITAMINS [Concomitant]
     Dosage: UNK
  4. NUCYNTA [Suspect]
     Active Substance: TAPENTADOL HYDROCHLORIDE
     Dosage: 37.5 MG, 4X/DAY (EVERY 6 HOURS)
     Route: 048
     Dates: start: 202009
  5. VALIUM [Concomitant]
     Active Substance: DIAZEPAM
     Dosage: AS NEEDED
  6. ZOLPIDEM [Concomitant]
     Active Substance: ZOLPIDEM TARTRATE
  7. NUCYNTA [Suspect]
     Active Substance: TAPENTADOL HYDROCHLORIDE
     Indication: PAIN IN EXTREMITY
     Dosage: 37.5 MG, 4X/DAY (EVERY 6 HOURS)
     Route: 048
     Dates: end: 202009

REACTIONS (2)
  - Paraesthesia [Recovered/Resolved]
  - Intentional product use issue [Not Recovered/Not Resolved]

NARRATIVE: CASE EVENT DATE: 20200909
